FAERS Safety Report 10473183 (Version 1)
Quarter: 2014Q3

REPORT INFORMATION
  Report Type: Report from Study
  Country: US (occurrence: US)
  Receive Date: 20140924
  Receipt Date: 20140924
  Transmission Date: 20150326
  Serious: Yes (Other)
  Sender: FDA-Public Use
  Company Number: US-ACTELION-A-US2014-105352

PATIENT
  Age: 69 Year
  Sex: Male

DRUGS (3)
  1. TRACLEER [Suspect]
     Active Substance: BOSENTAN\BOSENTAN MONOHYDRATE
     Indication: COR PULMONALE CHRONIC
     Dosage: UNK
     Route: 048
  2. SILDENAFIL [Concomitant]
     Active Substance: SILDENAFIL
  3. COUMADIN [Concomitant]
     Active Substance: WARFARIN SODIUM

REACTIONS (1)
  - Brachytherapy to prostate [Unknown]
